FAERS Safety Report 8582720-0 (Version None)
Quarter: 2012Q3

REPORT INFORMATION
  Report Type: 
  Country: None (occurrence: None)
  Receive Date: 20120809
  Receipt Date: 20120731
  Transmission Date: 20120928
  Serious: Yes (Other)
  Sender: FDA-Public Use
  Company Number: US-JNJFOC-20120701865

PATIENT
  Sex: Female

DRUGS (7)
  1. BUTOCONAZOLE NITRATE [Suspect]
     Indication: FUNGAL INFECTION
     Route: 065
  2. KEPPRA [Suspect]
     Indication: CONVULSION
     Route: 048
     Dates: start: 20070101, end: 20110101
  3. TOPAMAX [Suspect]
     Indication: MULTIPLE SCLEROSIS
     Route: 048
     Dates: start: 20050401, end: 20110101
  4. TOPAMAX [Suspect]
     Indication: CONVULSION
     Route: 048
     Dates: start: 20050401, end: 20110101
  5. NEURONTIN [Suspect]
     Indication: MULTIPLE SCLEROSIS
     Route: 048
  6. INTERFERON BETA-1B [Suspect]
     Indication: MULTIPLE SCLEROSIS
     Route: 058
     Dates: start: 20070101
  7. CLONAZEPAM [Suspect]
     Indication: MULTIPLE SCLEROSIS
     Route: 048

REACTIONS (4)
  - ANXIETY [None]
  - DEPRESSION [None]
  - MATERNAL EXPOSURE DURING PREGNANCY [None]
  - STRESS [None]
